FAERS Safety Report 5080023-2 (Version None)
Quarter: 2006Q3

REPORT INFORMATION
  Report Type: 
  Country: None (occurrence: None)
  Receive Date: 20060810
  Receipt Date: 20060803
  Transmission Date: 20061208
  Serious: No
  Sender: FDA-Public Use
  Company Number: DE-2006-021720

PATIENT
  Sex: Female

DRUGS (1)
  1. MIRENA [Suspect]
     Dosage: 20 UG/DAY, CONT, INTRA-UTERINE
     Route: 015

REACTIONS (3)
  - ASTHENIA [None]
  - CONNECTIVE TISSUE DISORDER [None]
  - INTERVERTEBRAL DISC PROTRUSION [None]
